FAERS Safety Report 7070240-4 (Version None)
Quarter: 2010Q4

REPORT INFORMATION
  Report Type: 
  Country: None (occurrence: None)
  Receive Date: 20101028
  Receipt Date: 20100927
  Transmission Date: 20110411
  Serious: No
  Sender: FDA-Public Use
  Company Number: US-WYE-H17793410

PATIENT
  Sex: Female

DRUGS (1)
  1. ADVIL [Suspect]
     Dosage: UNKNOWN
     Route: 065
     Dates: start: 20080101

REACTIONS (3)
  - DYSURIA [None]
  - HEADACHE [None]
  - SWELLING FACE [None]
